FAERS Safety Report 23372279 (Version 1)
Quarter: 2024Q1

REPORT INFORMATION
  Report Type: Spontaneous
  Country: US (occurrence: US)
  Receive Date: 20240105
  Receipt Date: 20240105
  Transmission Date: 20240410
  Serious: No
  Sender: FDA-Public Use
  Company Number: US-PFIZER INC-202400000968

PATIENT
  Age: 71 Year
  Sex: Male

DRUGS (5)
  1. DOCETAXEL [Suspect]
     Active Substance: DOCETAXEL\DOCETAXEL ANHYDROUS
     Dosage: UNK
  2. ABIRATERONE ACETATE [Suspect]
     Active Substance: ABIRATERONE ACETATE
     Dosage: UNK
  3. PREDNISONE [Suspect]
     Active Substance: PREDNISONE
     Dosage: UNK
  4. LUTETIUM LU-177 [Suspect]
     Active Substance: LUTETIUM LU-177
     Dosage: UNK
  5. CABAZITAXEL [Suspect]
     Active Substance: CABAZITAXEL
     Dosage: UNK

REACTIONS (1)
  - Neoplasm progression [Unknown]
